FAERS Safety Report 15003553 (Version 3)
Quarter: 2018Q3

REPORT INFORMATION
  Report Type: Spontaneous
  Country: US (occurrence: US)
  Receive Date: 20180613
  Receipt Date: 20180802
  Transmission Date: 20181010
  Serious: Yes (Hospitalization)
  Sender: FDA-Public Use
  Company Number: US-CIPLA LTD.-2018US19019

PATIENT

DRUGS (9)
  1. OLANZAPINE. [Interacting]
     Active Substance: OLANZAPINE
     Indication: SCHIZOAFFECTIVE DISORDER
     Dosage: UNK
     Route: 048
  2. FLUOXETINE [Interacting]
     Active Substance: FLUOXETINE HYDROCHLORIDE
     Indication: DEPRESSION
     Dosage: UNK
     Route: 048
  3. CYPROHEPTADINE. [Interacting]
     Active Substance: CYPROHEPTADINE
     Dosage: 2 MG, PRN
     Route: 048
  4. BUPROPION. [Suspect]
     Active Substance: BUPROPION
     Indication: PRODUCT USED FOR UNKNOWN INDICATION
     Dosage: UNK
     Route: 048
  5. CYPROHEPTADINE. [Interacting]
     Active Substance: CYPROHEPTADINE
     Indication: INSOMNIA
     Dosage: 12 MG, UNK
     Route: 048
  6. TRAZODONE [Interacting]
     Active Substance: TRAZODONE HYDROCHLORIDE
     Indication: PRODUCT USED FOR UNKNOWN INDICATION
     Dosage: UNK
     Route: 048
  7. RISPERIDONE. [Interacting]
     Active Substance: RISPERIDONE
     Indication: SCHIZOAFFECTIVE DISORDER
     Dosage: UNK
     Route: 048
  8. CYPROHEPTADINE. [Interacting]
     Active Substance: CYPROHEPTADINE
     Dosage: UNK
     Route: 048
  9. CYPROHEPTADINE. [Interacting]
     Active Substance: CYPROHEPTADINE
     Dosage: 12 MG OVER THE NEXT 72 H
     Route: 048

REACTIONS (8)
  - Intentional overdose [Unknown]
  - Pneumonia aspiration [Unknown]
  - Acute kidney injury [Unknown]
  - Liver function test abnormal [Unknown]
  - Serotonin syndrome [Recovering/Resolving]
  - Rhabdomyolysis [Unknown]
  - Electrocardiogram QT prolonged [Unknown]
  - Drug interaction [Unknown]
